FAERS Safety Report 17791740 (Version 1)
Quarter: 2020Q2

REPORT INFORMATION
  Report Type: Spontaneous
  Country: US (occurrence: US)
  Receive Date: 20200515
  Receipt Date: 20200515
  Transmission Date: 20200714
  Serious: Yes (Other)
  Sender: FDA-Public Use
  Company Number: None

PATIENT
  Age: 88 Year

DRUGS (2)
  1. ELIQUIS [Suspect]
     Active Substance: APIXABAN
  2. PRADAXA [Suspect]
     Active Substance: DABIGATRAN ETEXILATE MESYLATE

REACTIONS (1)
  - Pruritus [None]

NARRATIVE: CASE EVENT DATE: 20200515
